FAERS Safety Report 9045148 (Version 1)
Quarter: 2013Q1

REPORT INFORMATION
  Report Type: Report from Study
  Country: US (occurrence: US)
  Receive Date: 20130130
  Receipt Date: 20130130
  Transmission Date: 20140127
  Serious: No
  Sender: FDA-Public Use
  Company Number: US-ABBOTT-12P-163-0969637-00

PATIENT
  Age: 60 Year
  Sex: Male

DRUGS (4)
  1. HUMIRA 40 MG/0.8 ML PEN [Suspect]
     Indication: CROHN^S DISEASE
     Dates: start: 20120717, end: 20120717
  2. HUMIRA 40 MG/0.8 ML PEN [Suspect]
     Dates: start: 20120801, end: 20120801
  3. HUMIRA 40 MG/0.8 ML PEN [Suspect]
  4. VITAMIN B12 [Concomitant]
     Indication: PRODUCT USED FOR UNKNOWN INDICATION

REACTIONS (2)
  - Eye disorder [None]
  - Drug ineffective [Not Recovered/Not Resolved]
